FAERS Safety Report 4429060-9 (Version None)
Quarter: 2004Q3

REPORT INFORMATION
  Report Type: 
  Country: None (occurrence: None)
  Receive Date: 20040818
  Receipt Date: 20030505
  Transmission Date: 20050211
  Serious: Yes (Death)
  Sender: FDA-Public Use
  Company Number: US-MERCK-0305USA00547

PATIENT
  Age: 80 Year
  Sex: Male
  Weight: 82 kg

DRUGS (8)
  1. CORDARONE [Concomitant]
     Route: 065
     Dates: start: 20010101, end: 20020503
  2. ASPIRIN [Concomitant]
     Route: 065
     Dates: start: 20010101, end: 20020503
  3. LIPITOR [Concomitant]
     Route: 065
     Dates: start: 20010101, end: 20020503
  4. DILACOR XR [Concomitant]
     Route: 065
     Dates: start: 20010101, end: 20020503
  5. FUROSEMIDE [Concomitant]
     Route: 065
     Dates: start: 20010101, end: 20020503
  6. COZAAR [Concomitant]
     Route: 065
     Dates: start: 20010101, end: 20020503
  7. K-DUR 10 [Concomitant]
     Route: 065
     Dates: start: 20010101, end: 20020503
  8. VIOXX [Suspect]
     Indication: ARTHRALGIA
     Route: 048
     Dates: start: 20020429

REACTIONS (2)
  - INJURY [None]
  - MYOCARDIAL INFARCTION [None]
